FAERS Safety Report 25288265 (Version 1)
Quarter: 2025Q2

REPORT INFORMATION
  Report Type: Report from Study
  Country: IN (occurrence: IN)
  Receive Date: 20250509
  Receipt Date: 20250509
  Transmission Date: 20250716
  Serious: Yes (Other)
  Sender: NOVARTIS
  Company Number: IN-002147023-NVSC2024IN093750

PATIENT
  Sex: Female

DRUGS (3)
  1. RIBOCICLIB [Suspect]
     Active Substance: RIBOCICLIB
     Indication: Hormone receptor positive breast cancer
     Dosage: 200 MG, TID
     Route: 048
     Dates: start: 20240122
  2. RIBOCICLIB [Suspect]
     Active Substance: RIBOCICLIB
     Indication: Breast cancer metastatic
     Dosage: 600MG THREE TIMES A DAY (MORNING, AFTERNOON AND EVENING)
     Route: 048
  3. RIBOCICLIB [Suspect]
     Active Substance: RIBOCICLIB
     Route: 065

REACTIONS (6)
  - Lower respiratory tract infection [Unknown]
  - Lymphadenopathy [Unknown]
  - Weight decreased [Unknown]
  - Vitamin D deficiency [Unknown]
  - Blood creatine increased [Unknown]
  - Off label use [Unknown]
